FAERS Safety Report 18028675 (Version 1)
Quarter: 2020Q3

REPORT INFORMATION
  Report Type: Spontaneous
  Country: US (occurrence: US)
  Receive Date: 20200715
  Receipt Date: 20200715
  Transmission Date: 20201103
  Serious: Yes (Death, Other)
  Sender: FDA-Public Use
  Company Number: US-PFIZER INC-2019-06973

PATIENT
  Age: 53 Year
  Sex: Female

DRUGS (1)
  1. MEKTOVI [Suspect]
     Active Substance: BINIMETINIB
     Indication: MALIGNANT MELANOMA
     Dosage: 90 MG
     Route: 048
     Dates: start: 20190912

REACTIONS (5)
  - Adult failure to thrive [Fatal]
  - Off label use [Unknown]
  - Encephalopathy [Fatal]
  - Neoplasm progression [Fatal]
  - Intracranial tumour haemorrhage [Unknown]

NARRATIVE: CASE EVENT DATE: 20190912
